FAERS Safety Report 15118811 (Version 2)
Quarter: 2018Q3

REPORT INFORMATION
  Report Type: Report from Study
  Country: FR (occurrence: FR)
  Receive Date: 20180709
  Receipt Date: 20180713
  Transmission Date: 20181010
  Serious: Yes (Hospitalization)
  Sender: FDA-Public Use
  Company Number: FR-ROCHE-1357935

PATIENT
  Age: 78 Year
  Sex: Male
  Weight: 71 kg

DRUGS (13)
  1. RITUXIMAB. [Suspect]
     Active Substance: RITUXIMAB
     Indication: NON-HODGKIN^S LYMPHOMA
     Dosage: DATE OF LAST DOSE PRIOR TO SAE : 25/FEB/2014
     Route: 058
     Dates: start: 20131008, end: 20140225
  2. BACTRIM [Concomitant]
     Active Substance: SULFAMETHOXAZOLE\TRIMETHOPRIM
     Indication: INFECTION PROPHYLAXIS
     Dosage: 1 CP
     Route: 065
     Dates: start: 20130624
  3. MOPRAL [Concomitant]
     Active Substance: OMEPRAZOLE
     Indication: ABDOMINAL PAIN UPPER
     Route: 065
     Dates: start: 20130624
  4. TRIVASTAL [Concomitant]
     Active Substance: PIRIBEDIL
     Indication: HYPERTENSION
     Route: 065
     Dates: start: 201308
  5. KARDEGIC [Concomitant]
     Active Substance: ASPIRIN DL-LYSINE
     Indication: HYPERTENSION
     Route: 065
     Dates: start: 2008
  6. SOTALOL. [Concomitant]
     Active Substance: SOTALOL
     Indication: CARDIAC FAILURE
     Route: 065
     Dates: start: 20140310, end: 20140408
  7. NORSET [Concomitant]
     Active Substance: MIRTAZAPINE
     Indication: DEPRESSION
     Route: 065
     Dates: start: 20131001
  8. ZELITREX [Concomitant]
     Active Substance: VALACYCLOVIR HYDROCHLORIDE
     Indication: INFECTION PROPHYLAXIS
     Route: 065
     Dates: start: 20130624
  9. PRITOR [Concomitant]
     Active Substance: TELMISARTAN
     Indication: HYPERTENSION
     Route: 065
     Dates: start: 2010
  10. TAZOCILLINE [Concomitant]
     Active Substance: PIPERACILLIN SODIUM\TAZOBACTAM SODIUM
     Indication: SEPTIC SHOCK
     Route: 065
     Dates: start: 20131001, end: 20131009
  11. RITUXIMAB. [Suspect]
     Active Substance: RITUXIMAB
     Indication: NON-HODGKIN^S LYMPHOMA
     Dosage: 375 MILLIGRAMS PER SQUARE METER [MG/M^2] INTRAVENOUSLY [IV] IN CYCLE 1
     Route: 042
  12. VANCOMYCIN [Concomitant]
     Active Substance: VANCOMYCIN
     Indication: SEPTIC SHOCK
     Route: 065
     Dates: start: 20131001, end: 20131009
  13. DERMOVAL (FRANCE) [Concomitant]
     Indication: SKIN LESION
     Dosage: 1 TOPIC
     Route: 065
     Dates: start: 20131105

REACTIONS (2)
  - Cerebrovascular accident [Not Recovered/Not Resolved]
  - Acute pulmonary oedema [Recovered/Resolved]

NARRATIVE: CASE EVENT DATE: 20140225
